FAERS Safety Report 5445734-5 (Version None)
Quarter: 2007Q3

REPORT INFORMATION
  Report Type: 
  Country: None (occurrence: None)
  Receive Date: 20070904
  Receipt Date: 20070824
  Transmission Date: 20080115
  Serious: Yes (Other)
  Sender: FDA-Public Use
  Company Number: 011794

PATIENT
  Age: 37 Year
  Sex: Female

DRUGS (8)
  1. DIDANOSINE [Suspect]
     Indication: DRUG EXPOSURE DURING PREGNANCY
     Dosage: 400 MG/DAY, ORAL
     Route: 048
  2. DIDANOSINE [Suspect]
     Indication: HIV INFECTION
     Dosage: 400 MG/DAY, ORAL
     Route: 048
  3. ZIDOVUDINE [Suspect]
     Indication: DRUG EXPOSURE DURING PREGNANCY
     Dosage: 600 MG/DAY, ORAL
     Route: 048
  4. ZIDOVUDINE [Suspect]
     Indication: HIV INFECTION
     Dosage: 600 MG/DAY, ORAL
     Route: 048
  5. KALETRA [Suspect]
     Indication: DRUG EXPOSURE DURING PREGNANCY
     Dosage: 4 TABLET, ORAL
     Route: 048
  6. KALETRA [Suspect]
     Indication: HIV INFECTION
     Dosage: 4 TABLET, ORAL
     Route: 048
  7. ZIDOVUDINE [Suspect]
     Indication: PROPHYLAXIS AGAINST HIV INFECTION
     Dosage: 2 MG/KG, INTRAVENOUS; 1 MG/KG, INTRAVENOUS
     Route: 042
     Dates: start: 20070517, end: 20070517
  8. ZIDOVUDINE [Suspect]
     Indication: PROPHYLAXIS AGAINST HIV INFECTION
     Dosage: 2 MG/KG, INTRAVENOUS; 1 MG/KG, INTRAVENOUS
     Route: 042
     Dates: start: 20070517, end: 20070517

REACTIONS (7)
  - ATRIOVENTRICULAR BLOCK COMPLETE [None]
  - COARCTATION OF THE AORTA [None]
  - DRUG EXPOSURE DURING PREGNANCY [None]
  - HEAT RASH [None]
  - METABOLIC ACIDOSIS [None]
  - PATENT DUCTUS ARTERIOSUS [None]
  - VENTRICULAR SEPTAL DEFECT [None]
